FAERS Safety Report 6395428-7 (Version None)
Quarter: 2009Q4

REPORT INFORMATION
  Report Type: 
  Country: None (occurrence: None)
  Receive Date: 20091009
  Receipt Date: 20090929
  Transmission Date: 20100525
  Serious: Yes (Hospitalization)
  Sender: FDA-Public Use
  Company Number: US-PFIZER INC-2009254751

PATIENT
  Sex: Female
  Weight: 104.31 kg

DRUGS (11)
  1. AMLODIPINE BESILATE, ATORVASTATIN CALCIUM [Suspect]
     Indication: HYPERTENSION
     Dosage: 10 MG/20 MG, 1X/DAY
     Route: 048
     Dates: start: 20090718, end: 20090731
  2. ATACAND HCT [Suspect]
     Indication: HYPERTENSION
     Dosage: 32 MG/12.5 MG, 1X/DAY
     Route: 048
     Dates: start: 20090720, end: 20090801
  3. NORVASC [Concomitant]
     Dosage: UNK
     Dates: start: 20090801
  4. TOPROL-XL [Concomitant]
     Dosage: UNK
  5. HYTRIN [Concomitant]
     Dosage: UNK
     Dates: start: 20090726
  6. LASIX [Concomitant]
     Dosage: UNK
     Dates: start: 20090501
  7. GLUCOTROL XL [Concomitant]
     Dosage: UNK
     Dates: start: 20090401
  8. PLAVIX [Concomitant]
     Dosage: UNK
     Dates: start: 20090501
  9. ACETYLSALICYLIC ACID [Concomitant]
     Dosage: UNK
  10. DRISDOL [Concomitant]
     Dosage: UNK
  11. SYNTHROID [Concomitant]
     Dosage: UNK
     Dates: start: 20090801

REACTIONS (3)
  - GOUTY ARTHRITIS [None]
  - PAIN IN EXTREMITY [None]
  - RENAL FAILURE ACUTE [None]
